FAERS Safety Report 8881201 (Version 2)
Quarter: 2012Q4

REPORT INFORMATION
  Report Type: 
  Country: JP (occurrence: JP)
  Receive Date: 20121031
  Receipt Date: 20121127
  Transmission Date: 20130627
  Serious: Yes (Hospitalization, Other)
  Sender: FDA-Public Use
  Company Number: PHHY2012JP091229

PATIENT
  Age: 73 Year
  Sex: Male
  Weight: 55 kg

DRUGS (9)
  1. RASILEZ [Suspect]
     Indication: HYPERTENSION
     Dosage: 300 mg, BID
     Route: 048
     Dates: end: 20120706
  2. RASILEZ [Suspect]
     Dosage: 300 mg, BID
     Route: 048
     Dates: end: 20121002
  3. ALDOMET [Concomitant]
     Indication: HYPERTENSION
     Dosage: 6 DF, UNK
     Route: 048
  4. CARDENALIN [Concomitant]
     Indication: HYPERTENSION
     Dosage: 2 DF, UNK
     Route: 048
  5. URSO [Concomitant]
     Indication: CHRONIC HEPATITIS
     Dosage: 3 DF, UNK
     Route: 048
  6. LASIX [Concomitant]
     Indication: HYPERTENSION
     Dosage: 2 DF, UNK
     Route: 048
  7. NORVASC [Concomitant]
     Indication: HYPERTENSION
     Dosage: 2 DF, UNK
     Route: 048
  8. RIBALL [Concomitant]
     Indication: HYPERURICAEMIA
     Dosage: 1 DF, UNK
     Route: 048
  9. KYOBERIN [Concomitant]
     Indication: DIARRHOEA
     Dosage: 3 DF, UNK
     Route: 048

REACTIONS (4)
  - Diarrhoea [Recovering/Resolving]
  - Mucous stools [Unknown]
  - Weight decreased [Unknown]
  - Haemoglobin decreased [Unknown]
